FAERS Safety Report 14451014 (Version 2)
Quarter: 2018Q1

REPORT INFORMATION
  Report Type: Spontaneous
  Country: US (occurrence: US)
  Receive Date: 20180129
  Receipt Date: 20180216
  Transmission Date: 20180509
  Serious: Yes (Hospitalization)
  Sender: FDA-Public Use
  Company Number: US-PFIZER INC-2018032102

PATIENT
  Age: 54 Year
  Sex: Female

DRUGS (1)
  1. ADVIL PM [Suspect]
     Active Substance: DIPHENHYDRAMINE CITRATE\IBUPROFEN
     Indication: INSOMNIA
     Dosage: 200 MG, UNK
     Dates: start: 201712, end: 20180122

REACTIONS (4)
  - Foreign body in respiratory tract [Unknown]
  - Product physical issue [Unknown]
  - Dysphagia [Unknown]
  - Product use complaint [Unknown]
